FAERS Safety Report 6175251-9 (Version None)
Quarter: 2009Q2

REPORT INFORMATION
  Report Type: 
  Country: None (occurrence: None)
  Receive Date: 20090430
  Receipt Date: 20090202
  Transmission Date: 20091009
  Serious: No
  Sender: FDA-Public Use
  Company Number: US-ASTRAZENECA-2009UW02960

PATIENT
  Age: 56 Year
  Sex: Female
  Weight: 74.8 kg

DRUGS (4)
  1. NEXIUM [Suspect]
     Indication: GASTROOESOPHAGEAL REFLUX DISEASE
     Route: 048
     Dates: start: 20010101
  2. ATIVAN [Concomitant]
     Indication: ANXIETY
  3. VITAMIN D [Concomitant]
  4. LIDA PINCUM [Concomitant]
     Indication: MENOPAUSE

REACTIONS (3)
  - CHEST PAIN [None]
  - DRUG INEFFECTIVE [None]
  - PALPITATIONS [None]
